FAERS Safety Report 7588963-7 (Version None)
Quarter: 2011Q3

REPORT INFORMATION
  Report Type: 
  Country: None (occurrence: None)
  Receive Date: 20110705
  Receipt Date: 20110621
  Transmission Date: 20111222
  Serious: Yes (Other)
  Sender: FDA-Public Use
  Company Number: US-BAYER-2010-008627

PATIENT
  Age: 21 Year
  Sex: Female
  Weight: 95.692 kg

DRUGS (7)
  1. YAZ [Suspect]
     Indication: ACNE
  2. YAZ [Suspect]
     Indication: CONTRACEPTION
     Dosage: UNK
     Route: 048
     Dates: start: 20070901, end: 20071201
  3. PHENERGAN HCL [Concomitant]
     Dosage: 25 MG, QID
     Route: 048
  4. ZOLOFT [Concomitant]
     Indication: DEPRESSION
     Dosage: 100 MG, QD
     Route: 048
     Dates: start: 20050101
  5. YAZ [Suspect]
     Indication: PREMENSTRUAL SYNDROME
  6. PERCOCET [Concomitant]
     Indication: PAIN
     Route: 048
  7. ZOLOFT [Concomitant]
     Indication: ANXIETY

REACTIONS (8)
  - ABDOMINAL PAIN UPPER [None]
  - PAIN [None]
  - DYSPEPSIA [None]
  - GALLBLADDER DISORDER [None]
  - CHOLECYSTITIS CHRONIC [None]
  - ANXIETY [None]
  - PROCEDURAL PAIN [None]
  - EMOTIONAL DISTRESS [None]
